FAERS Safety Report 24165764 (Version 1)
Quarter: 2024Q3

REPORT INFORMATION
  Report Type: Spontaneous
  Country: US (occurrence: US)
  Receive Date: 20240802
  Receipt Date: 20240802
  Transmission Date: 20241016
  Serious: Yes (Hospitalization, Other)
  Sender: AUROBINDO
  Company Number: US-MLMSERVICE-20240715-PI133231-00232-1

PATIENT
  Age: 68 Year
  Sex: Female

DRUGS (9)
  1. MYCOPHENOLIC ACID [Suspect]
     Active Substance: MYCOPHENOLIC ACID
     Indication: Immunosuppressant drug therapy
     Dosage: 750 MILLIGRAM
     Route: 048
  2. MYCOPHENOLIC ACID [Suspect]
     Active Substance: MYCOPHENOLIC ACID
     Dosage: FURTHER REDUCED
     Route: 048
  3. MYCOPHENOLIC ACID [Suspect]
     Active Substance: MYCOPHENOLIC ACID
     Dosage: MAINTENANCE
     Route: 048
  4. METHYLPREDNISOLONE [Suspect]
     Active Substance: METHYLPREDNISOLONE
     Indication: Transplant rejection
     Dosage: 1000 MILLIGRAM (IN 2 DIVIDED DOSES)
     Route: 042
  5. METHYLPREDNISOLONE [Suspect]
     Active Substance: METHYLPREDNISOLONE
     Indication: Immunosuppressant drug therapy
     Dosage: UNK (INDUCTION IMMUNOSUPPRESSION)
     Route: 065
  6. PREDNISONE [Suspect]
     Active Substance: PREDNISONE
     Indication: Immunosuppressant drug therapy
     Dosage: 5 MILLIGRAM, ONCE A DAY
     Route: 048
  7. TACROLIMUS [Suspect]
     Active Substance: TACROLIMUS
     Indication: Immunosuppressant drug therapy
     Dosage: UNK (WITH GOAL 12-HOUR TROUGH LEVELS OF 8 TO 10 NG/DL)
     Route: 065
  8. BASILIXIMAB [Suspect]
     Active Substance: BASILIXIMAB
     Indication: Immunosuppressant drug therapy
     Dosage: UNK
     Route: 065
  9. VALGANCICLOVIR [Concomitant]
     Active Substance: VALGANCICLOVIR
     Indication: Antiviral prophylaxis
     Dosage: UNK
     Route: 065

REACTIONS (8)
  - Renal transplant failure [Unknown]
  - Acute kidney injury [Unknown]
  - Transplant rejection [Unknown]
  - Pulmonary oedema [Unknown]
  - Polyomavirus-associated nephropathy [Recovering/Resolving]
  - Cytomegalovirus colitis [Recovering/Resolving]
  - COVID-19 [Recovering/Resolving]
  - Focal segmental glomerulosclerosis [Unknown]
